FAERS Safety Report 12224037 (Version 3)
Quarter: 2016Q2

REPORT INFORMATION
  Report Type: Other
  Country: CN (occurrence: CN)
  Receive Date: 20160330
  Receipt Date: 20160421
  Transmission Date: 20160815
  Serious: Yes (Life-Threatening, Hospitalization)
  Sender: FDA-Public Use
  Company Number: CN-SPECTRUM PHARMACEUTICALS, INC.-16-P-CN-00071

PATIENT
  Age: 53 Year
  Sex: Female
  Weight: 40 kg

DRUGS (6)
  1. KANGFUXIN YE [Concomitant]
     Active Substance: HERBALS
     Indication: STOMATITIS
     Dosage: 100 ML, UNK
     Route: 048
     Dates: start: 20151124
  2. CHLORHEXIDINE [Concomitant]
     Active Substance: CHLORHEXIDINE
     Indication: STOMATITIS
     Dosage: 20 ML, UNK
     Route: 048
     Dates: start: 20151214
  3. POTASSIUM CHLORIDE. [Concomitant]
     Active Substance: POTASSIUM CHLORIDE
     Indication: HYPOKALAEMIA
     Dosage: 1 G, TID
     Route: 048
     Dates: start: 20160108
  4. PRALATREXATE [Suspect]
     Active Substance: PRALATREXATE
     Dosage: 30 MG/M2, QW
     Route: 042
     Dates: start: 20151124, end: 20151229
  5. PRALATREXATE [Suspect]
     Active Substance: PRALATREXATE
     Indication: PERIPHERAL T-CELL LYMPHOMA UNSPECIFIED
     Dosage: 30 MG/M2, QW
     Route: 042
     Dates: start: 20160301, end: 20160406
  6. PRALATREXATE [Suspect]
     Active Substance: PRALATREXATE
     Dosage: 30 MG/M2, QW
     Route: 042
     Dates: start: 20160112, end: 20160216

REACTIONS (2)
  - Gastrointestinal ulcer [Recovered/Resolved]
  - Platelet count decreased [Recovered/Resolved]

NARRATIVE: CASE EVENT DATE: 20160322
